FAERS Safety Report 8898711 (Version 2)
Quarter: 2012Q4

REPORT INFORMATION
  Report Type: 
  Country: CN (occurrence: CN)
  Receive Date: 20121109
  Receipt Date: 20121114
  Transmission Date: 20130627
  Serious: Yes (Other)
  Sender: FDA-Public Use
  Company Number: CN-PFIZER INC-2012278402

PATIENT
  Age: 57 Year
  Sex: Female

DRUGS (1)
  1. SUTENT [Suspect]
     Indication: RENAL CELL CARCINOMA
     Dosage: 37.5 mg once daily
     Route: 048
     Dates: end: 20121030

REACTIONS (3)
  - Anuria [Unknown]
  - White blood cell count decreased [Unknown]
  - Eye oedema [Unknown]
